FAERS Safety Report 10052178 (Version 1)
Quarter: 2014Q2

REPORT INFORMATION
  Report Type: Spontaneous
  Country: US (occurrence: None)
  Receive Date: 20140401
  Receipt Date: 20140401
  Transmission Date: 20141212
  Serious: Yes (Other)
  Sender: FDA-Public Use
  Company Number: None

PATIENT
  Age: 89 Year
  Sex: Male

DRUGS (1)
  1. LIPOSOMAL DOXORUBICIN [Suspect]
     Indication: NEOPLASM MALIGNANT
     Dates: start: 20140303

REACTIONS (7)
  - Infusion related reaction [None]
  - Back pain [None]
  - Flushing [None]
  - Flushing [None]
  - Pruritus [None]
  - Anxiety [None]
  - Dyspnoea [None]
